FAERS Safety Report 23281324 (Version 1)
Quarter: 2023Q4

REPORT INFORMATION
  Report Type: Spontaneous
  Country: JP (occurrence: JP)
  Receive Date: 20231211
  Receipt Date: 20231211
  Transmission Date: 20240110
  Serious: Yes (Hospitalization)
  Sender: FDA-Public Use
  Company Number: JP-GSKNCCC-Case-01871601_AE-78218

PATIENT

DRUGS (2)
  1. SUMATRIPTAN SUCCINATE [Suspect]
     Active Substance: SUMATRIPTAN SUCCINATE
     Indication: Migraine
     Dosage: 50 MG AT THE TIME OF AN ATTACK
  2. EMGALITY [Concomitant]
     Active Substance: GALCANEZUMAB-GNLM
     Indication: Migraine
     Dosage: UNK

REACTIONS (6)
  - Hospitalisation [Unknown]
  - Peripheral coldness [Recovered/Resolved]
  - Condition aggravated [Recovered/Resolved]
  - Oedema [Recovered/Resolved]
  - Hypoaesthesia [Recovered/Resolved]
  - Prescription drug used without a prescription [Unknown]
